FAERS Safety Report 6793453-5 (Version None)
Quarter: 2010Q2

REPORT INFORMATION
  Report Type: 
  Country: None (occurrence: None)
  Receive Date: 20100624
  Receipt Date: 20100315
  Transmission Date: 20101027
  Serious: No
  Sender: FDA-Public Use
  Company Number: US-MYLANLABS-2010S1004596

PATIENT
  Age: 49 Year
  Sex: Male

DRUGS (6)
  1. CLOZAPINE [Suspect]
     Indication: SCHIZOPHRENIA
     Route: 048
  2. SERTRALINE HCL [Suspect]
     Route: 048
  3. SERTRALINE HCL [Suspect]
     Route: 048
  4. BUSPAR [Suspect]
     Route: 048
  5. TRIHEXYPHENIDYL HCL [Suspect]
     Route: 048
  6. STELAZINE [Concomitant]
     Indication: SCHIZOPHRENIA
     Route: 048

REACTIONS (2)
  - DRUG INTERACTION [None]
  - DRUG LEVEL INCREASED [None]
